FAERS Safety Report 12139857 (Version 1)
Quarter: 2016Q1

REPORT INFORMATION
  Report Type: Spontaneous
  Country: US (occurrence: None)
  Receive Date: 20160302
  Receipt Date: 20160302
  Transmission Date: 20160526
  Serious: Yes (Other)
  Sender: FDA-Public Use
  Company Number: None

PATIENT
  Age: 55 Year
  Sex: Female
  Weight: 63.5 kg

DRUGS (7)
  1. HYDREA [Concomitant]
     Active Substance: HYDROXYUREA
  2. ELIQUIS [Suspect]
     Active Substance: APIXABAN
  3. LORAZEPAM. [Concomitant]
     Active Substance: LORAZEPAM
  4. ATENOLOL. [Concomitant]
     Active Substance: ATENOLOL
  5. MULTI VITAMIN [Concomitant]
     Active Substance: VITAMINS
  6. TEMAZEPAM. [Suspect]
     Active Substance: TEMAZEPAM
  7. ACIDOPHYLUS [Suspect]
     Active Substance: BIFIDOBACTERIUM LONGUM\LACTOBACILLUS ACIDOPHILUS

REACTIONS (2)
  - Hypertension [None]
  - Headache [None]

NARRATIVE: CASE EVENT DATE: 20151015
